FAERS Safety Report 21581856 (Version 4)
Quarter: 2025Q2

REPORT INFORMATION
  Report Type: Report from Study
  Country: GB (occurrence: GB)
  Receive Date: 20221111
  Receipt Date: 20250611
  Transmission Date: 20250716
  Serious: Yes (Death, Hospitalization, Other)
  Sender: ROCHE
  Company Number: GB-ROCHE-2951998

PATIENT
  Age: 92 Year
  Sex: Male

DRUGS (13)
  1. TOCILIZUMAB [Suspect]
     Active Substance: TOCILIZUMAB
     Indication: Rheumatoid arthritis
     Route: 058
     Dates: start: 2016
  2. ACETAMINOPHEN [Concomitant]
     Active Substance: ACETAMINOPHEN
  3. METHOTREXATE [Concomitant]
     Active Substance: METHOTREXATE
  4. AMITRIPTYLINE [Concomitant]
     Active Substance: AMITRIPTYLINE
  5. ATORVASTATIN [Concomitant]
     Active Substance: ATORVASTATIN
  6. CALCIUM CARBONATE [Concomitant]
     Active Substance: CALCIUM CARBONATE
  7. CITALOPRAM [Concomitant]
     Active Substance: CITALOPRAM
  8. FOLIC ACID [Concomitant]
     Active Substance: FOLIC ACID
  9. OMEPRAZOLE [Concomitant]
     Active Substance: OMEPRAZOLE
  10. ALENDRONIC ACID [Concomitant]
     Active Substance: ALENDRONIC ACID
  11. CODEINE [Concomitant]
     Active Substance: CODEINE
  12. TAMSULOSIN [Concomitant]
     Active Substance: TAMSULOSIN
  13. PROCHLORPERAZINE [Concomitant]
     Active Substance: PROCHLORPERAZINE

REACTIONS (4)
  - Hernia [Unknown]
  - Infection [Unknown]
  - Skin neoplasm excision [Unknown]
  - Death [Fatal]

NARRATIVE: CASE EVENT DATE: 20250602
